FAERS Safety Report 9714167 (Version 1)
Quarter: 2013Q4

REPORT INFORMATION
  Report Type: Spontaneous
  Country: US (occurrence: US)
  Receive Date: 20131126
  Receipt Date: 20131126
  Transmission Date: 20140711
  Serious: No
  Sender: FDA-Public Use
  Company Number: US-GILEAD-2008-0019098

PATIENT
  Sex: Male
  Weight: 104.33 kg

DRUGS (16)
  1. LETAIRIS [Suspect]
     Indication: PULMONARY ARTERIAL HYPERTENSION
     Route: 048
     Dates: start: 20081110
  2. REVATIO [Concomitant]
     Route: 048
  3. LASIX [Concomitant]
     Route: 048
  4. DIGITEK [Concomitant]
     Route: 048
  5. ULTRAM [Concomitant]
     Route: 048
  6. AFRIN [Concomitant]
     Route: 045
  7. GLUCOPHAGE [Concomitant]
     Route: 048
  8. KLOR-CON [Concomitant]
     Route: 048
  9. EPIPEN [Concomitant]
     Route: 030
  10. HYDROCODONE-APAP [Concomitant]
     Route: 048
  11. BENADRYL [Concomitant]
     Route: 048
  12. ALEVE [Concomitant]
     Route: 048
  13. MULTIVITAMIN [Concomitant]
     Route: 048
  14. GLUCOSAMINE [Concomitant]
     Route: 048
  15. POTASSIUM [Concomitant]
     Route: 048
  16. VITAMIN B-100 [Concomitant]
     Route: 048

REACTIONS (1)
  - Nasal congestion [None]
